FAERS Safety Report 7078179-5 (Version None)
Quarter: 2010Q4

REPORT INFORMATION
  Report Type: 
  Country: None (occurrence: None)
  Receive Date: 20101101
  Receipt Date: 20101101
  Transmission Date: 20110411
  Serious: Yes (Disabling, Other)
  Sender: FDA-Public Use
  Company Number: None

PATIENT
  Sex: Male

DRUGS (1)
  1. SAPHRIS [Suspect]
     Indication: BIPOLAR DISORDER
     Dosage: 10MG QHS PO
     Route: 048
     Dates: start: 20100526, end: 20100912

REACTIONS (3)
  - CONVULSION [None]
  - PAIN [None]
  - UPPER LIMB FRACTURE [None]
